FAERS Safety Report 9452455 (Version 5)
Quarter: 2013Q3

REPORT INFORMATION
  Report Type: Spontaneous
  Country: US (occurrence: US)
  Receive Date: 20130812
  Receipt Date: 20130828
  Transmission Date: 20140515
  Serious: Yes (Death, Hospitalization)
  Sender: FDA-Public Use
  Company Number: US-JNJFOC-20130800687

PATIENT
  Age: 68 Year
  Sex: Female
  Weight: 74.4 kg

DRUGS (8)
  1. XARELTO [Suspect]
     Indication: PULMONARY EMBOLISM
     Route: 048
     Dates: start: 20130301, end: 20130508
  2. XARELTO [Suspect]
     Indication: DEEP VEIN THROMBOSIS
     Route: 048
     Dates: start: 20130301, end: 20130508
  3. FOLIC ACID [Concomitant]
     Route: 048
  4. MARINOL [Concomitant]
     Indication: VOMITING
     Dosage: P.R.N
     Route: 048
  5. MARINOL [Concomitant]
     Indication: NAUSEA
     Dosage: P.R.N
     Route: 048
  6. OXYCODONE [Concomitant]
     Indication: PAIN
     Dosage: 1 TABLET P.R.N
     Route: 048
  7. METOPROLOL SUCCINATE [Concomitant]
     Route: 048
  8. ALPRAZOLAM [Concomitant]
     Indication: SLEEP DISORDER
     Dosage: AT BEDTIME P.R.N
     Route: 065

REACTIONS (6)
  - Death [Fatal]
  - Brain herniation [Not Recovered/Not Resolved]
  - Haemorrhage intracranial [Not Recovered/Not Resolved]
  - Pulmonary embolism [Not Recovered/Not Resolved]
  - Deep vein thrombosis [Not Recovered/Not Resolved]
  - Blood pressure systolic increased [Not Recovered/Not Resolved]
